FAERS Safety Report 25793934 (Version 2)
Quarter: 2025Q4

REPORT INFORMATION
  Report Type: Report from Study
  Country: US (occurrence: US)
  Receive Date: 20250912
  Receipt Date: 20251010
  Transmission Date: 20260117
  Serious: No
  Sender: ACADIA PHARMACEUTICALS
  Company Number: US-ACADIA PHARMACEUTICALS INC.-ACA-2025-PIM-010019

PATIENT
  Age: 71 Year
  Sex: Male

DRUGS (13)
  1. NUPLAZID [Suspect]
     Active Substance: PIMAVANSERIN TARTRATE
     Indication: Parkinson^s disease
     Dosage: 34 MILLIGRAM, QD
     Route: 048
     Dates: start: 20240906, end: 20250929
  2. NUPLAZID [Suspect]
     Active Substance: PIMAVANSERIN TARTRATE
     Indication: Dyskinesia
  3. AMANTADINE [Concomitant]
     Active Substance: AMANTADINE
  4. ARMODAFINIL [Concomitant]
     Active Substance: ARMODAFINIL
  5. DONEPEZIL [Concomitant]
     Active Substance: DONEPEZIL
  6. CHOLECALCIFEROL [Concomitant]
     Active Substance: CHOLECALCIFEROL
  7. VITAMIN E [Concomitant]
     Active Substance: .ALPHA.-TOCOPHEROL
  8. TROSPIUM [Concomitant]
     Active Substance: TROSPIUM
  9. TYLENOL [Concomitant]
     Active Substance: ACETAMINOPHEN
  10. CARBIDOPA\LEVODOPA [Concomitant]
     Active Substance: CARBIDOPA\LEVODOPA
  11. CITALOPRAM [Concomitant]
     Active Substance: CITALOPRAM
  12. IBUPROFEN [Concomitant]
     Active Substance: IBUPROFEN
  13. PRAMIPEXOLE [Concomitant]
     Active Substance: PRAMIPEXOLE

REACTIONS (1)
  - Blood bilirubin increased [Not Recovered/Not Resolved]

NARRATIVE: CASE EVENT DATE: 20250903
